FAERS Safety Report 21486630 (Version 1)
Quarter: 2022Q4

REPORT INFORMATION
  Report Type: Report from Study
  Country: US (occurrence: US)
  Receive Date: 20221020
  Receipt Date: 20221020
  Transmission Date: 20230112
  Serious: Yes (Other)
  Sender: FDA-Public Use
  Company Number: US-ABBVIE-22K-163-4489989-00

PATIENT
  Sex: Male

DRUGS (4)
  1. HUMIRA [Suspect]
     Active Substance: ADALIMUMAB
     Indication: Psoriatic arthropathy
     Route: 058
  2. HUMIRA [Suspect]
     Active Substance: ADALIMUMAB
     Indication: Rheumatoid arthritis
  3. MODERNA COVID-19 VACCINE [Concomitant]
     Active Substance: ELASOMERAN
     Indication: COVID-19 immunisation
     Dosage: TIME INTERVAL: 1 TOTAL
     Route: 030
  4. MODERNA COVID-19 VACCINE [Concomitant]
     Active Substance: ELASOMERAN
     Indication: COVID-19 immunisation
     Dosage: TIME INTERVAL: 1 TOTAL: BOOSTER DOSE
     Route: 030

REACTIONS (12)
  - Mass [Not Recovered/Not Resolved]
  - Dry mouth [Unknown]
  - Ligament sprain [Unknown]
  - Arthropathy [Unknown]
  - Hernia [Not Recovered/Not Resolved]
  - Limb mass [Unknown]
  - Skin discolouration [Recovered/Resolved]
  - Back pain [Unknown]
  - Muscle spasms [Unknown]
  - Tongue discomfort [Not Recovered/Not Resolved]
  - Peripheral swelling [Unknown]
  - Glossodynia [Unknown]

NARRATIVE: CASE EVENT DATE: 20220101
